FAERS Safety Report 5221219-6 (Version None)
Quarter: 2007Q1

REPORT INFORMATION
  Report Type: 
  Country: None (occurrence: None)
  Receive Date: 20061201
  Receipt Date: 20060817
  Transmission Date: 20070707
  Serious: No
  Sender: FDA-Public Use
  Company Number: 2006PV014739

PATIENT
  Age: 65 Year
  Sex: Female
  Weight: 122.4712 kg

DRUGS (8)
  1. BYETTA [Suspect]
     Indication: DIABETES MELLITUS NON-INSULIN-DEPENDENT
     Dosage: SEE IMAGE
     Route: 058
     Dates: start: 20060530, end: 20060101
  2. BYETTA [Suspect]
     Indication: DIABETES MELLITUS NON-INSULIN-DEPENDENT
     Dosage: SEE IMAGE
     Route: 058
     Dates: start: 20060101
  3. BYETTA [Suspect]
  4. GLUCOPHAGE [Concomitant]
  5. ACTOS [Concomitant]
  6. AMARYL [Concomitant]
  7. FORTAMET [Concomitant]
  8. .. [Concomitant]

REACTIONS (10)
  - ABDOMINAL PAIN UPPER [None]
  - AGITATION [None]
  - DECREASED APPETITE [None]
  - FEELING JITTERY [None]
  - FLATULENCE [None]
  - INSOMNIA [None]
  - MEDICATION ERROR [None]
  - NAUSEA [None]
  - PAIN IN EXTREMITY [None]
  - WEIGHT DECREASED [None]
